FAERS Safety Report 6267639-2 (Version None)
Quarter: 2009Q3

REPORT INFORMATION
  Report Type: 
  Country: None (occurrence: None)
  Receive Date: 20090714
  Receipt Date: 20090701
  Transmission Date: 20100115
  Serious: Yes (Hospitalization)
  Sender: FDA-Public Use
  Company Number: US-ELI_LILLY_AND_COMPANY-US200907000879

PATIENT
  Age: 59 Year
  Sex: Female

DRUGS (3)
  1. CYMBALTA [Suspect]
     Dosage: 30 MG, UNK
     Dates: start: 20090101, end: 20090423
  2. INDERAL [Concomitant]
     Dosage: 20 MG, 2/D
  3. SYNTHROID [Concomitant]

REACTIONS (4)
  - DIZZINESS [None]
  - HIP ARTHROPLASTY [None]
  - HYPOTENSION [None]
  - MYOCARDIAL INFARCTION [None]
